FAERS Safety Report 12874593 (Version 1)
Quarter: 2016Q4

REPORT INFORMATION
  Report Type: Report from Study
  Country: None (occurrence: VE)
  Receive Date: 20161021
  Receipt Date: 20161021
  Transmission Date: 20170207
  Serious: Yes (Death)
  Sender: FDA-Public Use
  Company Number: VE-ABBVIE-16P-178-1761043-00

PATIENT
  Age: 52 Year
  Sex: Male

DRUGS (1)
  1. ZEMPLAR [Suspect]
     Active Substance: PARICALCITOL
     Indication: NEPHROPATHY
     Route: 042
     Dates: start: 20151020, end: 20160714

REACTIONS (3)
  - Cardiovascular disorder [Fatal]
  - Hypertensive cardiomyopathy [Fatal]
  - Diabetes mellitus [Fatal]

NARRATIVE: CASE EVENT DATE: 20161003
